FAERS Safety Report 8942051 (Version 1)
Quarter: 2012Q4

REPORT INFORMATION
  Report Type: Report from Study
  Country: CA (occurrence: CA)
  Receive Date: 20121130
  Receipt Date: 20121130
  Transmission Date: 20130627
  Serious: Yes (Other)
  Sender: FDA-Public Use
  Company Number: CA-ABBOTT-12P-028-0976897-00

PATIENT
  Sex: Male
  Weight: 99.88 kg

DRUGS (2)
  1. HUMIRA [Suspect]
     Indication: CROHN^S DISEASE
     Route: 058
     Dates: start: 20070713, end: 2010
  2. HUMIRA [Suspect]
     Route: 058
     Dates: start: 2010

REACTIONS (3)
  - Meniscus injury [Unknown]
  - Surgery [Unknown]
  - Staphylococcal infection [Unknown]
